FAERS Safety Report 11168240 (Version 1)
Quarter: 2015Q2

REPORT INFORMATION
  Report Type: Spontaneous
  Country: US (occurrence: None)
  Receive Date: 20150604
  Receipt Date: 20150604
  Transmission Date: 20150821
  Serious: Yes (Death, Life-Threatening, Hospitalization)
  Sender: FDA-Public Use
  Company Number: None

PATIENT
  Age: 86 Year
  Sex: Female
  Weight: 45.36 kg

DRUGS (4)
  1. ELIQUIS [Suspect]
     Active Substance: APIXABAN
     Indication: DEEP VEIN THROMBOSIS
     Route: 048
     Dates: start: 20150425, end: 20150501
  2. PROCARDIA XL [Concomitant]
     Active Substance: NIFEDIPINE
  3. MULTIVITAMIN [Concomitant]
     Active Substance: VITAMINS
  4. METROPOLOL [Concomitant]
     Active Substance: METOPROLOL

REACTIONS (4)
  - Haematocrit decreased [None]
  - Gastrointestinal haemorrhage [None]
  - Haemoglobin decreased [None]
  - Cerebrovascular accident [None]

NARRATIVE: CASE EVENT DATE: 20150501
